FAERS Safety Report 9729445 (Version 1)
Quarter: 2013Q4

REPORT INFORMATION
  Report Type: Spontaneous
  Country: US (occurrence: US)
  Receive Date: 20131204
  Receipt Date: 20131204
  Transmission Date: 20140711
  Serious: No
  Sender: FDA-Public Use
  Company Number: US-GILEAD-2009-0021398

PATIENT
  Sex: Female
  Weight: 113.4 kg

DRUGS (8)
  1. LETAIRIS [Suspect]
     Indication: PULMONARY ARTERIAL HYPERTENSION
     Route: 048
     Dates: start: 20090317
  2. TENORMIN [Concomitant]
  3. AMLODIPINE BESYLATE [Concomitant]
  4. HYZAAR [Concomitant]
  5. LASIX [Concomitant]
  6. RISPERDAL [Concomitant]
  7. VICODIN [Concomitant]
  8. POTASSIUM CHLORIDE [Concomitant]

REACTIONS (2)
  - Somnolence [Unknown]
  - Local swelling [Unknown]
